FAERS Safety Report 12801671 (Version 1)
Quarter: 2016Q4

REPORT INFORMATION
  Report Type: Spontaneous
  Country: US (occurrence: US)
  Receive Date: 20161003
  Receipt Date: 20161003
  Transmission Date: 20170207
  Serious: No
  Sender: FDA-Public Use
  Company Number: US-PFIZER INC-2016458029

PATIENT
  Sex: Female

DRUGS (2)
  1. AROMASIN [Suspect]
     Active Substance: EXEMESTANE
     Dosage: UNK
  2. AFINITOR [Suspect]
     Active Substance: EVEROLIMUS

REACTIONS (7)
  - Feeling abnormal [Unknown]
  - Stomatitis [Unknown]
  - Pancreatic disorder [Unknown]
  - Memory impairment [Unknown]
  - Neoplasm progression [Unknown]
  - Feeding disorder [Unknown]
  - Lung disorder [Unknown]
